FAERS Safety Report 4274670-5 (Version None)
Quarter: 2004Q1

REPORT INFORMATION
  Report Type: 
  Country: None (occurrence: None)
  Receive Date: 20040120
  Receipt Date: 20040120
  Transmission Date: 20041129
  Serious: Yes (Other)
  Sender: FDA-Public Use
  Company Number: None

PATIENT
  Age: 22 Year
  Sex: Female
  Weight: 70.3075 kg

DRUGS (1)
  1. LARIAM [Suspect]
     Indication: MALARIA PROPHYLAXIS
     Dosage: WEEKLY
     Dates: start: 19930630, end: 19930830

REACTIONS (4)
  - ANXIETY [None]
  - NIGHTMARE [None]
  - PANIC ATTACK [None]
  - VERTIGO [None]
